FAERS Safety Report 12329696 (Version 4)
Quarter: 2016Q3

REPORT INFORMATION
  Report Type: Spontaneous
  Country: US (occurrence: US)
  Receive Date: 20160503
  Receipt Date: 20160907
  Transmission Date: 20161109
  Serious: Yes (Other)
  Sender: FDA-Public Use
  Company Number: US-009507513-1605USA001433

PATIENT
  Age: 27 Year
  Sex: Female
  Weight: 115.19 kg

DRUGS (1)
  1. NEXPLANON [Suspect]
     Active Substance: ETONOGESTREL
     Indication: CONTRACEPTION
     Dosage: 68 MG / ONE ROD PER 3 YEAR
     Route: 059
     Dates: start: 20151204, end: 20160429

REACTIONS (8)
  - Menstruation irregular [Recovered/Resolved]
  - Unintended pregnancy [Unknown]
  - Implant site pain [Recovered/Resolved]
  - Pregnancy with implant contraceptive [Unknown]
  - Difficulty removing drug implant [Recovered/Resolved]
  - Application site discomfort [Recovered/Resolved]
  - Hormone level abnormal [Unknown]
  - Device breakage [Recovered/Resolved]

NARRATIVE: CASE EVENT DATE: 20160422
